FAERS Safety Report 4598129-0 (Version None)
Quarter: 2005Q1

REPORT INFORMATION
  Report Type: 
  Country: None (occurrence: None)
  Receive Date: 20050302
  Receipt Date: 20050210
  Transmission Date: 20050727
  Serious: Yes (Other)
  Sender: FDA-Public Use
  Company Number: 2005-BP-02180RO

PATIENT
  Age: 33 Year
  Sex: Female

DRUGS (8)
  1. MORPHINE [Suspect]
     Indication: SEDATION
     Dosage: 10 MG IV
     Route: 042
  2. DICLOFENAC SODIUM [Suspect]
     Indication: SEDATION
     Dosage: 100 MG IV
     Route: 042
  3. PROPOFOL [Suspect]
     Indication: SEDATION
     Dosage: 170 MG IV
     Route: 042
  4. ALEFENTAYL (ALEFENTANYL) [Suspect]
     Indication: SEDATION
     Dosage: 0.5 MG IV
     Route: 042
  5. ATROPINE [Suspect]
     Indication: SEDATION
     Dosage: 0.6 MG IV
     Route: 042
  6. VECURONIUM(VECURONIUM) [Suspect]
     Indication: SEDATION
     Dosage: 3 MG IV
     Route: 042
  7. NITROUS OXIDE W/ OXYGEN [Suspect]
     Indication: SEDATION
  8. ENFLURANE [Suspect]
     Indication: SEDATION

REACTIONS (3)
  - ANAESTHETIC COMPLICATION [None]
  - HEMIPARESIS [None]
  - MOTOR DYSFUNCTION [None]
